FAERS Safety Report 9571232 (Version 1)
Quarter: 2013Q4

REPORT INFORMATION
  Report Type: Spontaneous
  Country: US (occurrence: US)
  Receive Date: 20131001
  Receipt Date: 20131001
  Transmission Date: 20140711
  Serious: No
  Sender: FDA-Public Use
  Company Number: US-BAYER-2013-117318

PATIENT
  Age: 49 Year
  Sex: Female

DRUGS (1)
  1. CLIMARA [Suspect]
     Indication: HOT FLUSH
     Dosage: UNK
     Dates: start: 201208

REACTIONS (6)
  - Alopecia [None]
  - Hair texture abnormal [None]
  - Mood swings [None]
  - Stress [None]
  - Extra dose administered [None]
  - Blood thyroid stimulating hormone decreased [None]
